FAERS Safety Report 13874867 (Version 1)
Quarter: 2017Q3

REPORT INFORMATION
  Report Type: Spontaneous
  Country: US (occurrence: US)
  Receive Date: 20170816
  Receipt Date: 20170816
  Transmission Date: 20171127
  Serious: No
  Sender: FDA-Public Use
  Company Number: US-ROCHE-1144063

PATIENT
  Sex: Female
  Weight: 60.38 kg

DRUGS (5)
  1. VITAMINS NOS [Concomitant]
     Active Substance: VITAMINS
     Indication: NEOVASCULAR AGE-RELATED MACULAR DEGENERATION
     Route: 048
  2. FISH OIL [Concomitant]
     Active Substance: FISH OIL
     Indication: NEOVASCULAR AGE-RELATED MACULAR DEGENERATION
     Route: 048
  3. VITAMIN E [Concomitant]
     Active Substance: .ALPHA.-TOCOPHEROL
     Indication: NEOVASCULAR AGE-RELATED MACULAR DEGENERATION
     Route: 048
  4. LUCENTIS [Suspect]
     Active Substance: RANIBIZUMAB
     Indication: NEOVASCULAR AGE-RELATED MACULAR DEGENERATION
     Route: 050
     Dates: start: 2006, end: 2009
  5. MVI [Concomitant]
     Active Substance: VITAMINS
     Indication: NEOVASCULAR AGE-RELATED MACULAR DEGENERATION
     Route: 048

REACTIONS (3)
  - Breast operation [Recovered/Resolved]
  - Visual impairment [Not Recovered/Not Resolved]
  - Post procedural haemorrhage [Recovered/Resolved]
